FAERS Safety Report 5426176-5 (Version None)
Quarter: 2007Q3

REPORT INFORMATION
  Report Type: 
  Country: None (occurrence: None)
  Receive Date: 20070827
  Receipt Date: 20070820
  Transmission Date: 20080115
  Serious: Yes (Other)
  Sender: FDA-Public Use
  Company Number: A0673079A

PATIENT

DRUGS (1)
  1. ARIXTRA [Suspect]
     Dosage: 7.5MG UNKNOWN
     Route: 058
     Dates: start: 20070101

REACTIONS (2)
  - DRUG INEFFECTIVE [None]
  - THROMBOSIS [None]
